FAERS Safety Report 18876858 (Version 1)
Quarter: 2021Q1

REPORT INFORMATION
  Report Type: Report from Study
  Country: US (occurrence: US)
  Receive Date: 20210211
  Receipt Date: 20210211
  Transmission Date: 20210420
  Serious: Yes (Other)
  Sender: FDA-Public Use
  Company Number: US-AUROBINDO-AUR-APL-2021-004686

PATIENT
  Age: 68 Year
  Sex: Female

DRUGS (4)
  1. TORASEMIDE [Suspect]
     Active Substance: TORSEMIDE
     Indication: CARDIAC FAILURE
     Dosage: 80 MILLIGRAM, DAILY
     Route: 048
  2. WARFARIN [Interacting]
     Active Substance: WARFARIN
     Indication: THROMBOSIS PROPHYLAXIS
     Dosage: 70 MILLIGRAM, EVERY WEEK
     Route: 065
  3. WARFARIN [Interacting]
     Active Substance: WARFARIN
     Dosage: 57.7 MILLIGRAM, EVERY WEEK
     Route: 065
  4. TORASEMIDE [Interacting]
     Active Substance: TORSEMIDE
     Indication: DIURETIC THERAPY

REACTIONS (2)
  - Drug interaction [Unknown]
  - International normalised ratio increased [Unknown]
